FAERS Safety Report 4345070-4 (Version None)
Quarter: 2004Q2

REPORT INFORMATION
  Report Type: 
  Country: None (occurrence: None)
  Receive Date: 20040420
  Receipt Date: 20040413
  Transmission Date: 20050107
  Serious: Yes (Life-Threatening, Hospitalization)
  Sender: FDA-Public Use
  Company Number: 2004-01258

PATIENT
  Age: 50 Year
  Sex: Female
  Weight: 62.3 kg

DRUGS (8)
  1. FERRLECIT [Suspect]
     Indication: IRON DEFICIENCY ANAEMIA
     Dosage: 187.5MG TO 208.3MG, INTRAVENOUS
     Route: 042
     Dates: start: 20040322, end: 20040322
  2. LISINOPRIL [Concomitant]
  3. VERAPAMIL [Concomitant]
  4. CALCITRIOL [Concomitant]
  5. NEPHROCAPS [Concomitant]
  6. PHOSLO [Concomitant]
  7. ACCOALTE (ZAFIRLUKAST) [Concomitant]
  8. INHALER [Concomitant]

REACTIONS (12)
  - ABDOMINAL PAIN UPPER [None]
  - ARTHRALGIA [None]
  - CHILLS [None]
  - DIARRHOEA [None]
  - DRUG TOXICITY [None]
  - HYPOTENSION [None]
  - NAUSEA [None]
  - OXYGEN SATURATION DECREASED [None]
  - PYREXIA [None]
  - TACHYCARDIA [None]
  - TREMOR [None]
  - VOMITING [None]
